FAERS Safety Report 5793538-6 (Version None)
Quarter: 2008Q2

REPORT INFORMATION
  Report Type: 
  Country: None (occurrence: None)
  Receive Date: 20080627
  Receipt Date: 20080618
  Transmission Date: 20081010
  Serious: Yes (Other)
  Sender: FDA-Public Use
  Company Number: PHHY2008JP11604

PATIENT

DRUGS (2)
  1. ZOMETA [Suspect]
     Dosage: 4 MG, UNK
     Route: 042
     Dates: start: 20060801
  2. AREDIA [Suspect]
     Route: 042

REACTIONS (1)
  - OSTEONECROSIS [None]
